FAERS Safety Report 9759513 (Version 1)
Quarter: 2013Q4

REPORT INFORMATION
  Report Type: Report from Study
  Country: FR (occurrence: FR)
  Receive Date: 20131216
  Receipt Date: 20131216
  Transmission Date: 20140711
  Serious: Yes (Hospitalization)
  Sender: FDA-Public Use
  Company Number: FR-009507513-1312FRA004335

PATIENT
  Age: 68 Year
  Sex: Female
  Weight: 68 kg

DRUGS (8)
  1. BOCEPREVIR [Suspect]
     Indication: HEPATITIS C
     Dosage: 800 MG, TID
     Dates: start: 20131104
  2. PEGASYS [Suspect]
     Indication: HEPATITIS C
     Dosage: 180 MICROGRAM, QW
     Dates: start: 20131007
  3. COPEGUS [Suspect]
     Indication: HEPATITIS C
     Dosage: 400 MG, BID
     Dates: start: 20131007
  4. KARDEGIC [Concomitant]
     Indication: ARTERIAL DISORDER
     Dosage: 75 MG, QD
     Dates: start: 201206
  5. INEXIUM [Concomitant]
     Indication: ABDOMINAL PAIN UPPER
     Dosage: 400 MG, QD
     Dates: start: 201209
  6. SEROPLEX [Concomitant]
     Indication: DEPRESSION
     Dosage: 10 MG, QD
     Dates: start: 201209
  7. LOXEN [Concomitant]
     Indication: HYPERTENSION
     Dosage: 20 MG, BID
     Dates: start: 201309
  8. NEORECORMON [Suspect]
     Indication: ANAEMIA
     Dosage: 30000 IU, QW
     Dates: start: 20131203

REACTIONS (3)
  - General physical health deterioration [Unknown]
  - Abdominal pain [Unknown]
  - Diarrhoea [Unknown]
